FAERS Safety Report 15019965 (Version 1)
Quarter: 2018Q2

REPORT INFORMATION
  Report Type: Report from Study
  Country: US (occurrence: US)
  Receive Date: 20180618
  Receipt Date: 20180618
  Transmission Date: 20180711
  Serious: No
  Sender: FDA-Public Use
  Company Number: US-AMGEN-USASL2018079080

PATIENT
  Age: 48 Year
  Sex: Female

DRUGS (1)
  1. ENBREL [Suspect]
     Active Substance: ETANERCEPT
     Indication: PSORIATIC ARTHROPATHY
     Dosage: 50 MG, QWK
     Route: 065

REACTIONS (8)
  - Malaise [Unknown]
  - Chills [Unknown]
  - Body temperature increased [Unknown]
  - Injection site bruising [Unknown]
  - Injection site warmth [Unknown]
  - Injection site mass [Unknown]
  - Nasal congestion [Unknown]
  - Injection site erythema [Unknown]

NARRATIVE: CASE EVENT DATE: 201806
